FAERS Safety Report 23353712 (Version 1)
Quarter: 2024Q1

REPORT INFORMATION
  Report Type: Spontaneous
  Country: US (occurrence: US)
  Receive Date: 20240101
  Receipt Date: 20240101
  Transmission Date: 20240409
  Serious: No
  Sender: FDA-Public Use
  Company Number: US-PURDUE PHARMA-USA-2023-0304018

PATIENT
  Sex: Female
  Weight: 72.562 kg

DRUGS (5)
  1. BUTRANS [Suspect]
     Active Substance: BUPRENORPHINE
     Indication: Fibromyalgia
     Dosage: 10 MCG/HR 4CT, ONCE EVERY 7 DAYS
     Route: 062
     Dates: start: 202307
  2. BUTRANS [Suspect]
     Active Substance: BUPRENORPHINE
     Indication: Ehlers-Danlos syndrome
  3. HYDROMORPHONE HYDROCHLORIDE [Suspect]
     Active Substance: HYDROMORPHONE HYDROCHLORIDE
     Indication: Product used for unknown indication
     Dosage: 3 X A DAY
     Route: 048
  4. METOPROLOL [Concomitant]
     Active Substance: METOPROLOL
     Indication: Product used for unknown indication
     Dosage: 2 X A DAY [25 MG TWICE A DAY]
     Route: 048
  5. OMEPRAZOLE [Concomitant]
     Active Substance: OMEPRAZOLE
     Indication: Product used for unknown indication
     Dosage: 2 X A DAY [40 MG TWICE A DAY]
     Route: 048

REACTIONS (2)
  - Drug ineffective [Unknown]
  - Drug withdrawal syndrome [Unknown]
